FAERS Safety Report 16958061 (Version 2)
Quarter: 2019Q4

REPORT INFORMATION
  Report Type: Spontaneous
  Country: GR (occurrence: GR)
  Receive Date: 20191024
  Receipt Date: 20191119
  Transmission Date: 20200122
  Serious: Yes (Hospitalization, Congenital Anomaly, Other)
  Sender: FDA-Public Use
  Company Number: GR-MYLANLABS-2019M1100877

PATIENT
  Sex: Female
  Weight: 1.91 kg

DRUGS (12)
  1. METHYLPREDNISOLONE. [Suspect]
     Active Substance: METHYLPREDNISOLONE
     Dosage: UNK
  2. NADROPARIN [Suspect]
     Active Substance: NADROPARIN
     Dosage: 0.3 ML, UNK
     Route: 064
  3. BETAMETHASONE. [Suspect]
     Active Substance: BETAMETHASONE
     Dosage: 12 MG, 2 DOSES
     Route: 064
  4. SALBUTAMOL [Suspect]
     Active Substance: ALBUTEROL
     Indication: GRANULOMATOSIS WITH POLYANGIITIS
     Dosage: 200 MICROGRAM, TID
     Route: 064
  5. METHYLPREDNISOLONE. [Suspect]
     Active Substance: METHYLPREDNISOLONE
     Indication: GRANULOMATOSIS WITH POLYANGIITIS
     Dosage: 4 MG, 2X/DAY
     Route: 064
  6. SALBUTAMOL [Suspect]
     Active Substance: ALBUTEROL
     Dosage: 600 UG, ONCE A DAY
     Route: 064
  7. FLUTICASONE PROPIONATE. [Suspect]
     Active Substance: FLUTICASONE PROPIONATE
     Indication: GRANULOMATOSIS WITH POLYANGIITIS
     Dosage: 250 MICROGRAM, BID
     Route: 064
  8. FLUTICASONE PROPIONATE. [Suspect]
     Active Substance: FLUTICASONE PROPIONATE
     Dosage: 500 UG, ONCE A DAY
     Route: 064
  9. METHYLPREDNISOLONE. [Suspect]
     Active Substance: METHYLPREDNISOLONE
     Dosage: 8 MG, 2X/DAY
     Route: 064
  10. NADROPARIN [Suspect]
     Active Substance: NADROPARIN
     Indication: GRANULOMATOSIS WITH POLYANGIITIS
     Dosage: MATERNAL DOSE
     Route: 064
  11. AZATHIOPRINE. [Suspect]
     Active Substance: AZATHIOPRINE
     Indication: GRANULOMATOSIS WITH POLYANGIITIS
     Dosage: 125 MG, ONCE A DAY
     Route: 064
  12. BETAMETHASONE. [Suspect]
     Active Substance: BETAMETHASONE
     Indication: GRANULOMATOSIS WITH POLYANGIITIS
     Dosage: MATERNAL DOSE: TWO DOSES OF 12 MG
     Route: 064

REACTIONS (5)
  - Low birth weight baby [Unknown]
  - Foetal growth restriction [Unknown]
  - Breech presentation [Unknown]
  - Premature baby [Unknown]
  - Foetal exposure during pregnancy [Recovered/Resolved]
